FAERS Safety Report 8831901 (Version 1)
Quarter: 2012Q4

REPORT INFORMATION
  Report Type: 
  Country: US (occurrence: US)
  Receive Date: 20121008
  Receipt Date: 20121008
  Transmission Date: 20130627
  Serious: Yes (Hospitalization)
  Sender: FDA-Public Use
  Company Number: US-ELI_LILLY_AND_COMPANY-US201205003216

PATIENT
  Sex: Female

DRUGS (11)
  1. FORTEO [Suspect]
     Indication: OSTEOPOROSIS
     Dosage: 20 ug, qd
     Dates: start: 201109
  2. FORTEO [Suspect]
     Dosage: 20 ug, qd
     Dates: start: 201109
  3. CARDIZEM                           /00489701/ [Concomitant]
     Dosage: 120 mg, qd
  4. CARDIZEM                           /00489701/ [Concomitant]
     Dosage: 180 mg, qd
  5. CARDIZEM                           /00489701/ [Concomitant]
     Dosage: 240 mg, qd
  6. TORSEMIDE [Concomitant]
     Dosage: 20 mg, UNK
  7. PACERONE [Concomitant]
     Dosage: 200 mg, qd
  8. PREMERON [Concomitant]
     Dosage: UNK, qd
  9. LEVOTHYROXINE [Concomitant]
     Dosage: 50 ug, qd
  10. NEXIUM [Concomitant]
  11. PREDNISONE [Concomitant]
     Dosage: 5 mg, UNK

REACTIONS (12)
  - Lung disorder [Unknown]
  - Fluid retention [Unknown]
  - Fluid retention [Unknown]
  - Oedema peripheral [Unknown]
  - Renal disorder [Unknown]
  - Joint swelling [Unknown]
  - Pain in extremity [Unknown]
  - Oedema peripheral [Unknown]
  - Asthenia [Unknown]
  - Fear of falling [Unknown]
  - Discomfort [Unknown]
  - Activities of daily living impaired [Unknown]
